FAERS Safety Report 5797899-3 (Version None)
Quarter: 2008Q2

REPORT INFORMATION
  Report Type: 
  Country: None (occurrence: None)
  Receive Date: 20080619
  Receipt Date: 20070802
  Transmission Date: 20081010
  Serious: Yes (Other)
  Sender: FDA-Public Use
  Company Number: 510014

PATIENT
  Age: 53 Year
  Sex: Male

DRUGS (3)
  1. ALLI [Suspect]
     Indication: WEIGHT CONTROL
     Dates: start: 20070623
  2. LIPITOR [Concomitant]
  3. ATENOLOL [Concomitant]

REACTIONS (5)
  - ASTHENIA [None]
  - DIARRHOEA [None]
  - DIZZINESS [None]
  - FAECAL INCONTINENCE [None]
  - FLATULENCE [None]
